FAERS Safety Report 9384304 (Version 3)
Quarter: 2013Q3

REPORT INFORMATION
  Report Type: Spontaneous
  Country: IT (occurrence: IT)
  Receive Date: 20130705
  Receipt Date: 20130731
  Transmission Date: 20140515
  Serious: Yes (Other)
  Sender: FDA-Public Use
  Company Number: PHHY2013IT068105

PATIENT
  Age: 75 Year
  Sex: Male

DRUGS (3)
  1. ZOMETA [Suspect]
     Indication: PROSTATE CANCER METASTATIC
     Dosage: 4 MG, MONTHLY
     Route: 042
     Dates: start: 20120901, end: 20130201
  2. DELTACORTENE [Concomitant]
     Indication: BONE PAIN
     Dosage: 05 MG, UNK
     Route: 048
     Dates: start: 20120901, end: 20130201
  3. DIBASE [Concomitant]
     Dosage: UNK UKN, UNK

REACTIONS (1)
  - Osteonecrosis of jaw [Not Recovered/Not Resolved]
